FAERS Safety Report 8516374 (Version 2)
Quarter: 2012Q4

REPORT INFORMATION
  Report Type: 
  Country: US (occurrence: US)
  Receive Date: 20120417
  Receipt Date: 20120910
  Transmission Date: 20130627
  Serious: No
  Sender: FDA-Public Use
  Company Number: US-ASTRAZENECA-2011SE45735

PATIENT
  Age: 40 Year
  Sex: Female

DRUGS (11)
  1. NEXIUM [Suspect]
     Route: 048
  2. SEROQUEL [Suspect]
     Route: 048
  3. PREMARIN [Concomitant]
  4. CLONAZEPAM [Concomitant]
  5. XANAX [Concomitant]
  6. TRAZADONE [Concomitant]
  7. AMYTRIPTALINE [Concomitant]
  8. PREDNASONE [Concomitant]
  9. TRAMADOL [Concomitant]
  10. OXYCODONE [Concomitant]
  11. FLOVENT HFA [Concomitant]

REACTIONS (5)
  - Diabetes mellitus [Unknown]
  - Blood glucose increased [Unknown]
  - Gastrooesophageal reflux disease [Unknown]
  - Malaise [Unknown]
  - Intentional drug misuse [Unknown]
